FAERS Safety Report 4532252-1 (Version None)
Quarter: 2004Q4

REPORT INFORMATION
  Report Type: 
  Country: None (occurrence: None)
  Receive Date: 20041217
  Receipt Date: 20041206
  Transmission Date: 20050328
  Serious: Yes (Other)
  Sender: FDA-Public Use
  Company Number: 210829

PATIENT
  Age: 74 Year
  Sex: Male
  Weight: 80.7 kg

DRUGS (12)
  1. AVASTIN [Suspect]
     Indication: COLORECTAL CANCER METASTATIC
     Dosage: 5 MG/KF, Q2W, INTRAVENOUS
     Route: 042
     Dates: start: 20040920, end: 20041129
  2. GLUCOPHAGE [Concomitant]
  3. GLIPIZIDE [Concomitant]
  4. INDERAL [Concomitant]
  5. ACTOS [Concomitant]
  6. LISINOPRIL [Concomitant]
  7. TRIAMTERENE HYDROCHLOROTHIAZIDE (HYDROCHLOROTHIAZIDE, TRIAMTERENE) [Concomitant]
  8. ZOCOR [Concomitant]
  9. FOLIC ACID [Concomitant]
  10. ARANESP [Concomitant]
  11. IRON (IRON NOS) [Concomitant]
  12. INSULIN [Concomitant]

REACTIONS (4)
  - ACUTE MYOCARDIAL INFARCTION [None]
  - ANAEMIA [None]
  - BLOOD GLUCOSE INCREASED [None]
  - CONDITION AGGRAVATED [None]
